FAERS Safety Report 6300347-8 (Version None)
Quarter: 2009Q3

REPORT INFORMATION
  Report Type: 
  Country: None (occurrence: None)
  Receive Date: 20090805
  Receipt Date: 20090724
  Transmission Date: 20100115
  Serious: Yes (Death, Hospitalization)
  Sender: FDA-Public Use
  Company Number: 230713J08USA

PATIENT
  Age: 56 Year
  Sex: Female
  Weight: 104 kg

DRUGS (9)
  1. REBIF [Suspect]
     Indication: MULTIPLE SCLEROSIS
     Dosage: 44 MCG, 3 IN 1 WEEKS, SUBCUTANEOUS
     Route: 058
     Dates: start: 20070316, end: 20080210
  2. PAROXETINE HCL [Concomitant]
  3. PROVIGIL [Concomitant]
  4. CLONAZEPAM [Concomitant]
  5. REQUIP (RPINIROLE HYDROCHLORIDE) [Concomitant]
  6. BACLOFE (BACLOFEN) [Concomitant]
  7. TRAZODONE HCL [Concomitant]
  8. METOCLOPRAMIDE [Concomitant]
  9. DIAZEPAM [Concomitant]

REACTIONS (8)
  - CONFUSIONAL STATE [None]
  - DEEP VEIN THROMBOSIS [None]
  - FALL [None]
  - FATIGUE [None]
  - HYPERTENSION [None]
  - LUNG INFECTION [None]
  - LUNG NEOPLASM MALIGNANT [None]
  - PULMONARY EMBOLISM [None]
